FAERS Safety Report 9504178 (Version 1)
Quarter: 2013Q3

REPORT INFORMATION
  Report Type: Spontaneous
  Country: US (occurrence: None)
  Receive Date: 20130905
  Receipt Date: 20130905
  Transmission Date: 20140515
  Serious: Yes (Hospitalization)
  Sender: FDA-Public Use
  Company Number: None

PATIENT
  Age: 63 None
  Sex: Male
  Weight: 111 kg

DRUGS (2)
  1. VANCOMYCIN [Suspect]
     Indication: SEPSIS
     Route: 042
     Dates: start: 20130809, end: 20130821
  2. CEFEPIME [Suspect]
     Dates: start: 20130809, end: 20130821

REACTIONS (1)
  - Clostridium difficile colitis [None]
